FAERS Safety Report 6021847-4 (Version None)
Quarter: 2008Q4

REPORT INFORMATION
  Report Type: 
  Country: None (occurrence: None)
  Receive Date: 20081229
  Receipt Date: 20081218
  Transmission Date: 20090506
  Serious: Yes (Other)
  Sender: FDA-Public Use
  Company Number: US-ROCHE-604043

PATIENT
  Sex: Male

DRUGS (1)
  1. TAMIFLU [Suspect]
     Route: 065
     Dates: start: 20081217

REACTIONS (4)
  - ABNORMAL DREAMS [None]
  - DELIRIUM [None]
  - DELUSION [None]
  - DISORIENTATION [None]
